FAERS Safety Report 10410543 (Version 1)
Quarter: 2014Q3

REPORT INFORMATION
  Report Type: Spontaneous
  Country: US (occurrence: US)
  Receive Date: 20140826
  Receipt Date: 20140826
  Transmission Date: 20150326
  Serious: No
  Sender: FDA-Public Use
  Company Number: US-BRISTOL-MYERS SQUIBB COMPANY-19776384

PATIENT
  Age: 60 Year
  Sex: Female
  Weight: 80.72 kg

DRUGS (2)
  1. KENALOG-40 [Suspect]
     Active Substance: TRIAMCINOLONE ACETONIDE
     Indication: MUSCULOSKELETAL PAIN
  2. XANAX [Concomitant]
     Active Substance: ALPRAZOLAM
     Dosage: 0.25MG

REACTIONS (11)
  - Palpitations [Recovered/Resolved]
  - Depression [Recovered/Resolved]
  - Alopecia [Recovered/Resolved]
  - Vomiting [Unknown]
  - Diarrhoea [Unknown]
  - Feeling cold [Unknown]
  - Tremor [Unknown]
  - Anxiety [Unknown]
  - Nausea [Unknown]
  - Paraesthesia [Recovered/Resolved]
  - Agitation [Unknown]
